FAERS Safety Report 4714840-2 (Version None)
Quarter: 2005Q3

REPORT INFORMATION
  Report Type: 
  Country: None (occurrence: None)
  Receive Date: 20050714
  Receipt Date: 20050714
  Transmission Date: 20060218
  Serious: Yes (Hospitalization)
  Sender: FDA-Public Use
  Company Number: None

PATIENT
  Sex: Male

DRUGS (1)
  1. EPTIFIBATIDE 75 MG/ 100 MG [Suspect]
     Indication: CATHETERISATION CARDIAC
     Dosage: 2MCG/KG/MIN OVER 24 HR INTRAVENOU
     Route: 042
     Dates: start: 20050308, end: 20050309

REACTIONS (4)
  - HAEMATURIA [None]
  - POST PROCEDURAL HAEMATOMA [None]
  - PROCEDURAL COMPLICATION [None]
  - SYNCOPE VASOVAGAL [None]
